FAERS Safety Report 7583610-2 (Version None)
Quarter: 2011Q2

REPORT INFORMATION
  Report Type: 
  Country: None (occurrence: None)
  Receive Date: 20110630
  Receipt Date: 20110623
  Transmission Date: 20111010
  Serious: Yes (Death)
  Sender: FDA-Public Use
  Company Number: A0933565A

PATIENT
  Age: 74 Year
  Sex: Male
  Weight: 67.5 kg

DRUGS (6)
  1. STROVITE [Concomitant]
  2. OMEPRAZOLE [Concomitant]
  3. VOTRIENT [Suspect]
     Indication: MALIGNANT NEOPLASM OF RENAL PELVIS
     Dosage: 800MG PER DAY
     Route: 048
     Dates: start: 20110125, end: 20110601
  4. DIPYRIDAMOLE [Concomitant]
  5. BISOPROLOL [Concomitant]
  6. MICARDIS [Concomitant]

REACTIONS (1)
  - DEATH [None]
